FAERS Safety Report 6688440-1 (Version None)
Quarter: 2010Q2

REPORT INFORMATION
  Report Type: 
  Country: None (occurrence: None)
  Receive Date: 20100420
  Receipt Date: 20100414
  Transmission Date: 20101027
  Serious: Yes (Hospitalization)
  Sender: FDA-Public Use
  Company Number: JP-ELI_LILLY_AND_COMPANY-JP201002005649

PATIENT
  Sex: Male
  Weight: 59.5 kg

DRUGS (28)
  1. GEMCITABINE HCL [Suspect]
     Indication: PANCREATIC CARCINOMA NON-RESECTABLE
     Dosage: UNK, UNK
     Route: 042
     Dates: start: 20100106, end: 20100113
  2. BLINDED THERAPY [Suspect]
     Indication: PANCREATIC CARCINOMA NON-RESECTABLE
     Dosage: UNK, UNK
     Route: 058
     Dates: start: 20100106, end: 20100127
  3. OXINORM [Concomitant]
     Indication: ANALGESIC THERAPY
     Dosage: 20 MG, AS NEEDED
     Route: 048
     Dates: end: 20100223
  4. HUMALOG [Concomitant]
     Indication: DIABETES MELLITUS
     Dosage: 22-25 IU, DAILY (1/D)
     Route: 058
     Dates: end: 20100212
  5. ASPIRIN [Concomitant]
     Indication: CAROTID ARTERIOSCLEROSIS
     Dosage: 100 MG, DAILY (1/D)
     Route: 048
     Dates: end: 20100212
  6. ASPIRIN [Concomitant]
     Dosage: 100 MG, DAILY (1/D)
     Route: 048
     Dates: start: 20100218, end: 20100226
  7. CILNIDIPINE [Concomitant]
     Indication: HYPERTENSION
     Dosage: 10 MG, DAILY (1/D)
     Route: 048
     Dates: end: 20100212
  8. CILNIDIPINE [Concomitant]
     Dosage: 10 MG, DAILY (1/D)
     Route: 048
     Dates: start: 20100218, end: 20100226
  9. CANDESARTAN CILEXETIL [Concomitant]
     Indication: HYPERTENSION
     Dosage: 8 MG, DAILY (1/D)
     Route: 048
     Dates: end: 20100212
  10. CANDESARTAN CILEXETIL [Concomitant]
     Dosage: 8 MG, DAILY (1/D)
     Route: 048
     Dates: start: 20100218, end: 20100226
  11. TRICHLORMETHIAZIDE [Concomitant]
     Indication: HYPERTENSION
     Dosage: 1 MG, DAILY (1/D)
     Route: 048
     Dates: end: 20100212
  12. TRICHLORMETHIAZIDE [Concomitant]
     Dosage: 1 MG, DAILY (1/D)
     Route: 048
     Dates: start: 20100218, end: 20100226
  13. FAMOSTAGINE [Concomitant]
     Indication: GASTRITIS PROPHYLAXIS
     Dosage: 10 MG, DAILY (1/D)
     Route: 048
     Dates: end: 20100212
  14. FAMOSTAGINE [Concomitant]
     Dosage: 10 MG, DAILY (1/D)
     Route: 048
     Dates: start: 20100218, end: 20100226
  15. GASMOTIN [Concomitant]
     Indication: ABDOMINAL DISCOMFORT
     Dosage: 5 MG, 3/D
     Route: 048
     Dates: end: 20100212
  16. GASMOTIN [Concomitant]
     Dosage: 5 MG, 3/D
     Route: 048
     Dates: start: 20100218, end: 20100226
  17. DOMPERIDONE [Concomitant]
     Indication: PROPHYLAXIS OF NAUSEA AND VOMITING
     Dosage: 10 MG, 3/D
     Route: 048
     Dates: end: 20100212
  18. DOMPERIDONE [Concomitant]
     Dosage: 10 MG, 3/D
     Route: 048
     Dates: start: 20100218, end: 20100226
  19. SENNOSIDE [Concomitant]
     Indication: CONSTIPATION
     Dosage: 24 MG, DAILY (1/D)
     Route: 048
     Dates: end: 20100212
  20. SENNOSIDE [Concomitant]
     Dosage: 24 MG, DAILY (1/D)
     Route: 048
     Dates: start: 20100218, end: 20100226
  21. MAGNESIUM OXIDE [Concomitant]
     Indication: CONSTIPATION
     Dosage: 0.5 G, 3/D
     Route: 048
     Dates: end: 20100212
  22. MAGNESIUM OXIDE [Concomitant]
     Dosage: 0.5 G, 3/D
     Route: 048
     Dates: start: 20100218, end: 20100226
  23. DUROTEP [Concomitant]
     Indication: ANALGESIC THERAPY
     Dosage: 50.4 MG, ONCE PER THREE DAYS
     Route: 062
     Dates: end: 20100228
  24. NEOPRAMIEL [Concomitant]
     Indication: NAUSEA
     Dosage: 10 MG, AS NEEDED
     Route: 015
     Dates: start: 20100207, end: 20100312
  25. AMINO ACIDS/CARBOHYDRATES/MINERALS/VITAMINS, [Concomitant]
     Indication: DECREASED APPETITE
     Dosage: 500 ML, DAILY (1/D)
     Route: 042
     Dates: start: 20100119, end: 20100212
  26. AMINO ACIDS/CARBOHYDRATES/MINERALS/VITAMINS, [Concomitant]
     Dosage: 1000 ML, DAILY (1/D)
     Route: 042
     Dates: start: 20100213, end: 20100218
  27. AMINO ACIDS/CARBOHYDRATES/MINERALS/VITAMINS, [Concomitant]
     Dosage: 500 ML, DAILY (1/D)
     Route: 042
     Dates: start: 20100219, end: 20100312
  28. DICLOFENAC SODIUM [Concomitant]
     Indication: ANALGESIC THERAPY
     Dosage: 12.5 MG OR 25 MG, AS NEEDED
     Route: 054
     Dates: end: 20100218

REACTIONS (1)
  - PULMONARY EMBOLISM [None]
